FAERS Safety Report 12152363 (Version 1)
Quarter: 2016Q1

REPORT INFORMATION
  Report Type: Spontaneous
  Country: IL (occurrence: IL)
  Receive Date: 20160304
  Receipt Date: 20160304
  Transmission Date: 20160526
  Serious: Yes (Death, Hospitalization)
  Sender: FDA-Public Use
  Company Number: IL-MUNDIPHARMA DS AND PHARMACOVIGILANCE-GBR-2016-0034352

PATIENT
  Age: 76 Year
  Sex: Female

DRUGS (1)
  1. BUTRANS [Suspect]
     Active Substance: BUPRENORPHINE
     Indication: POST-TRAUMATIC PAIN
     Dosage: UNK
     Route: 062
     Dates: start: 20160128

REACTIONS (2)
  - Vomiting [Fatal]
  - Renal failure [Fatal]
